FAERS Safety Report 21872268 (Version 8)
Quarter: 2023Q2

REPORT INFORMATION
  Report Type: Report from Study
  Country: CA (occurrence: None)
  Receive Date: 20230117
  Receipt Date: 20230616
  Transmission Date: 20230721
  Serious: Yes (Hospitalization)
  Sender: FDA-Public Use
  Company Number: CA-Eisai Medical Research-EC-2022-130666

PATIENT
  Age: 50 Year
  Sex: Female
  Weight: 79.2 kg

DRUGS (24)
  1. LENVATINIB [Suspect]
     Active Substance: LENVATINIB
     Indication: Renal cell carcinoma
     Dosage: STARTING DOSE AS 20 MG, (FLUCTUATED DOSAGE)
     Route: 048
     Dates: start: 20220922, end: 20221215
  2. LENVATINIB [Suspect]
     Active Substance: LENVATINIB
     Dosage: STARTING DOSE AS 14 MG, (FLUCTUATED DOSAGE)
     Route: 048
     Dates: start: 20221219
  3. BELZUTIFAN [Suspect]
     Active Substance: BELZUTIFAN
     Indication: Renal cell carcinoma
     Dosage: STARTING DOSE AS 120 MG, (FLUCTUATED DOSAGE)
     Route: 048
     Dates: start: 20220922, end: 20221215
  4. BELZUTIFAN [Suspect]
     Active Substance: BELZUTIFAN
     Dosage: STARTING DOSE AS 80 MG, (FLUCTUATED DOSAGE)
     Route: 048
     Dates: start: 20221219
  5. FORMOTEROL FUMARATE [Concomitant]
     Active Substance: FORMOTEROL FUMARATE
     Dates: start: 199001
  6. BUDESONIDE [Concomitant]
     Active Substance: BUDESONIDE
     Dates: start: 199001
  7. LORATADINE [Concomitant]
     Active Substance: LORATADINE
     Dates: start: 199911
  8. DESLORATADINE [Concomitant]
     Active Substance: DESLORATADINE
     Dates: start: 199911
  9. XGEVA [Concomitant]
     Active Substance: DENOSUMAB
     Route: 058
     Dates: start: 20010911
  10. LORAZEPAM [Concomitant]
     Active Substance: LORAZEPAM
     Dates: start: 202001
  11. PANTOPRAZOLE [Concomitant]
     Active Substance: PANTOPRAZOLE
     Dates: start: 202001
  12. HYDROMORPHONE [Concomitant]
     Active Substance: HYDROMORPHONE
     Dates: start: 20210415
  13. PROCHLORPERAZINE [Concomitant]
     Active Substance: PROCHLORPERAZINE
     Dates: start: 202108
  14. CHOLECALCIFEROL [Concomitant]
     Active Substance: CHOLECALCIFEROL
     Dates: start: 20210929
  15. CALCIUM CARBONATE [Concomitant]
     Active Substance: CALCIUM CARBONATE
     Dates: start: 20210929
  16. DOCUSATE SODIUM [Concomitant]
     Active Substance: DOCUSATE SODIUM
     Dates: start: 202111
  17. LAX A DAY PHARMA [Concomitant]
     Dates: start: 202111
  18. TRIAMCINOLONE [Concomitant]
     Active Substance: TRIAMCINOLONE
     Dates: start: 20220405
  19. CROMOLYN SODIUM [Concomitant]
     Active Substance: CROMOLYN SODIUM
     Dates: start: 20220502
  20. ACETAMINOPHEN [Concomitant]
     Active Substance: ACETAMINOPHEN
     Dates: start: 20220922
  21. METOCLOPRAMIDE HYDROCHLORIDE [Concomitant]
     Active Substance: METOCLOPRAMIDE HYDROCHLORIDE
     Dates: start: 20221007
  22. RAMIPRIL [Concomitant]
     Active Substance: RAMIPRIL
     Dates: start: 20221011, end: 20230110
  23. SYNTHROID [Concomitant]
     Active Substance: LEVOTHYROXINE SODIUM
     Dates: start: 20221105
  24. LOPERAMIDE [Concomitant]
     Active Substance: LOPERAMIDE
     Dates: start: 20221117

REACTIONS (1)
  - Pyrexia [Recovered/Resolved]

NARRATIVE: CASE EVENT DATE: 20221216
